FAERS Safety Report 18330158 (Version 2)
Quarter: 2020Q4

REPORT INFORMATION
  Report Type: Report from Study
  Country: BR (occurrence: BR)
  Receive Date: 20200930
  Receipt Date: 20201007
  Transmission Date: 20210113
  Serious: Yes (Other)
  Sender: FDA-Public Use
  Company Number: BR-TAKEDA-2020TUS014495

PATIENT
  Age: 17 Year
  Sex: Male
  Weight: 65 kg

DRUGS (4)
  1. TRAMADOL. [Concomitant]
     Active Substance: TRAMADOL
     Indication: PAIN
     Dosage: UNK
  2. VEDOLIZUMAB [Suspect]
     Active Substance: VEDOLIZUMAB
     Indication: COLITIS ULCERATIVE
     Dosage: 300 MILLIGRAM
     Route: 042
     Dates: start: 20191021
  3. LISADOR [Concomitant]
     Active Substance: DIPYRONE\PROMETHAZINE HYDROCHLORIDE
     Indication: PAIN
     Dosage: UNK
  4. URSACOL [Concomitant]
     Active Substance: URSODIOL
     Indication: LIVER DISORDER
     Dosage: 300 MILLIGRAM

REACTIONS (2)
  - Colitis ulcerative [Recovered/Resolved]
  - Product use issue [Unknown]

NARRATIVE: CASE EVENT DATE: 20191021
